FAERS Safety Report 21250150 (Version 1)
Quarter: 2022Q3

REPORT INFORMATION
  Report Type: Spontaneous
  Country: US (occurrence: US)
  Receive Date: 20220824
  Receipt Date: 20220824
  Transmission Date: 20221027
  Serious: Yes (Other)
  Sender: FDA-Public Use
  Company Number: US-JNJFOC-20220844286

PATIENT
  Age: 47 Year
  Sex: Female

DRUGS (10)
  1. TOPIRAMATE [Suspect]
     Active Substance: TOPIRAMATE
     Indication: Headache
     Route: 048
     Dates: start: 20201218
  2. TOPIRAMATE [Suspect]
     Active Substance: TOPIRAMATE
     Indication: Insomnia
  3. TOPIRAMATE [Suspect]
     Active Substance: TOPIRAMATE
     Indication: Balance disorder
  4. TOPIRAMATE [Suspect]
     Active Substance: TOPIRAMATE
     Indication: Dizziness
  5. TOPIRAMATE [Suspect]
     Active Substance: TOPIRAMATE
     Indication: Fatigue
  6. OCRELIZUMAB [Concomitant]
     Active Substance: OCRELIZUMAB
  7. VITAMIN D3 [Concomitant]
     Active Substance: CHOLECALCIFEROL
  8. ZYRTEC [Concomitant]
     Active Substance: CETIRIZINE HYDROCHLORIDE
  9. BACLOFEN [Concomitant]
     Active Substance: BACLOFEN
  10. TYLENOL [Concomitant]
     Active Substance: ACETAMINOPHEN

REACTIONS (1)
  - Multiple sclerosis [Recovered/Resolved]

NARRATIVE: CASE EVENT DATE: 20210103
